FAERS Safety Report 25949860 (Version 1)
Quarter: 2025Q4

REPORT INFORMATION
  Report Type: Spontaneous
  Country: US (occurrence: US)
  Receive Date: 20251022
  Receipt Date: 20251022
  Transmission Date: 20260117
  Serious: Yes (Hospitalization, Other)
  Sender: AMGEN
  Company Number: US-AMGEN-USASP2025206257

PATIENT

DRUGS (1)
  1. AMJEVITA [Suspect]
     Active Substance: ADALIMUMAB-ATTO
     Indication: Rheumatoid arthritis
     Dosage: UNK
     Route: 065

REACTIONS (8)
  - Rheumatoid arthritis [Unknown]
  - Infection [Unknown]
  - Neoplasm malignant [Unknown]
  - Cardiac failure congestive [Unknown]
  - Hepatitis B reactivation [Unknown]
  - Injection site rash [Unknown]
  - Injection site reaction [Unknown]
  - Loss of therapeutic response [Unknown]
